FAERS Safety Report 8458529-5 (Version None)
Quarter: 2012Q2

REPORT INFORMATION
  Report Type: 
  Country: None (occurrence: None)
  Receive Date: 20120622
  Receipt Date: 20120612
  Transmission Date: 20120825
  Serious: Yes (Other)
  Sender: FDA-Public Use
  Company Number: IT-JNJFOC-20120607462

PATIENT

DRUGS (1)
  1. REMICADE [Suspect]
     Indication: PSORIASIS
     Route: 042

REACTIONS (4)
  - HYPERSENSITIVITY [None]
  - ANTINUCLEAR ANTIBODY POSITIVE [None]
  - TUBERCULOSIS [None]
  - DRUG INEFFECTIVE [None]
